FAERS Safety Report 8195047-6 (Version None)
Quarter: 2012Q1

REPORT INFORMATION
  Report Type: 
  Country: None (occurrence: None)
  Receive Date: 20120308
  Receipt Date: 20110913
  Transmission Date: 20120608
  Serious: No
  Sender: FDA-Public Use
  Company Number: US-GLAXOSMITHKLINE-A0944436A

PATIENT
  Age: 62 Year
  Sex: Male

DRUGS (1)
  1. NICORETTE [Suspect]
     Indication: PRODUCT USED FOR UNKNOWN INDICATION
     Dosage: 20GUM PER DAY
     Dates: start: 19860101, end: 20110701

REACTIONS (2)
  - HEADACHE [None]
  - INTENTIONAL DRUG MISUSE [None]
